FAERS Safety Report 4773026-6 (Version None)
Quarter: 2005Q3

REPORT INFORMATION
  Report Type: 
  Country: None (occurrence: None)
  Receive Date: 20050916
  Receipt Date: 20050907
  Transmission Date: 20060218
  Serious: Yes (Other)
  Sender: FDA-Public Use
  Company Number: 2005125790

PATIENT
  Age: 60 Year
  Sex: Female
  Weight: 79.8331 kg

DRUGS (5)
  1. ZOLOFT [Suspect]
     Indication: DEPRESSION
     Dosage: 100 MG (50 MG, 2 IN 1 D)
  2. XANAX [Suspect]
     Indication: ANXIETY
     Dosage: 20 MG (20 MG, 1 IN 1 D)
     Dates: start: 20030101
  3. DOXEPIN HCL [Concomitant]
  4. NEXIUM [Concomitant]
  5. LASIX [Concomitant]

REACTIONS (2)
  - ANXIETY [None]
  - CEREBROVASCULAR ACCIDENT [None]
